FAERS Safety Report 9635880 (Version 2)
Quarter: 2013Q4

REPORT INFORMATION
  Report Type: Spontaneous
  Country: US (occurrence: US)
  Receive Date: 20131021
  Receipt Date: 20131021
  Transmission Date: 20140711
  Serious: Yes (Other)
  Sender: FDA-Public Use
  Company Number: US-NAPPMUNDI-USA-2013-0103948

PATIENT
  Age: 61 Year
  Sex: Female

DRUGS (5)
  1. BUTRANS [Suspect]
     Indication: NEURALGIA
     Dosage: 10 MCG/HR, 1/WEEK
     Route: 062
     Dates: start: 20130618, end: 20130705
  2. BUTRANS [Suspect]
     Dosage: 5 MCG/HR, 1/WEEK
     Route: 062
     Dates: start: 201307
  3. OXYCODONE HYDROCHLORIDE (SIMILAR TO NDA 22-272) [Concomitant]
     Indication: BREAKTHROUGH PAIN
     Dosage: 5 MG, TID
     Route: 048
     Dates: start: 201301
  4. GABAPENTIN [Concomitant]
     Indication: NEUROPATHY PERIPHERAL
     Dosage: 900 MG, QID
     Route: 048
  5. TRAMADOL [Concomitant]
     Indication: PAIN
     Dosage: 50 MG, TID
     Route: 048
     Dates: start: 201302

REACTIONS (13)
  - Hallucination [Unknown]
  - Pain [Not Recovered/Not Resolved]
  - Drug ineffective [Not Recovered/Not Resolved]
  - Insomnia [Not Recovered/Not Resolved]
  - Feeling abnormal [Unknown]
  - Hiccups [Unknown]
  - Chills [Unknown]
  - Dehydration [Unknown]
  - Mental impairment [Unknown]
  - Tinnitus [Unknown]
  - Nervousness [Unknown]
  - Nightmare [Unknown]
  - Product adhesion issue [Unknown]
